FAERS Safety Report 6249489-6 (Version None)
Quarter: 2009Q2

REPORT INFORMATION
  Report Type: 
  Country: None (occurrence: None)
  Receive Date: 20090629
  Receipt Date: 20090623
  Transmission Date: 20091009
  Serious: Yes (Death, Hospitalization)
  Sender: FDA-Public Use
  Company Number: B0560195A

PATIENT
  Sex: Male

DRUGS (10)
  1. RETROVIR [Suspect]
     Indication: HIV INFECTION
     Route: 048
     Dates: start: 19970101, end: 19980101
  2. EPIVIR [Suspect]
     Indication: HIV INFECTION
     Route: 048
     Dates: start: 19980101, end: 20000101
  3. ZIAGEN [Suspect]
     Indication: HIV INFECTION
     Route: 048
     Dates: start: 20020404
  4. NORVIR [Suspect]
     Indication: HIV INFECTION
     Route: 048
     Dates: start: 20040517
  5. VIDEX [Suspect]
     Indication: HIV INFECTION
     Route: 048
     Dates: start: 19970101, end: 19980101
  6. SUSTIVA [Suspect]
     Indication: HIV INFECTION
     Route: 048
     Dates: start: 19980101, end: 20000101
  7. ZERIT [Suspect]
     Indication: HIV INFECTION
     Route: 048
     Dates: start: 19980101, end: 20020101
  8. VIRACEPT [Suspect]
     Indication: HIV INFECTION
     Route: 048
     Dates: start: 20000101, end: 20020101
  9. KALETRA [Suspect]
     Indication: HIV INFECTION
     Route: 048
     Dates: start: 20020101, end: 20040101
  10. REYATAZ [Suspect]
     Indication: HIV INFECTION
     Route: 048
     Dates: start: 20040517

REACTIONS (14)
  - BLOOD CHOLESTEROL INCREASED [None]
  - BLOOD TRIGLYCERIDES INCREASED [None]
  - DEATH [None]
  - DIABETES MELLITUS [None]
  - HAEMATEMESIS [None]
  - HAEMOGLOBIN DECREASED [None]
  - HEPATIC CIRRHOSIS [None]
  - HEPATIC STEATOSIS [None]
  - LIPODYSTROPHY ACQUIRED [None]
  - LIVER DISORDER [None]
  - NODULAR REGENERATIVE HYPERPLASIA [None]
  - PORTAL HYPERTENSION [None]
  - SUDDEN DEATH [None]
  - VARICES OESOPHAGEAL [None]
